FAERS Safety Report 22045312 (Version 2)
Quarter: 2023Q1

REPORT INFORMATION
  Report Type: Spontaneous
  Country: FR (occurrence: FR)
  Receive Date: 20230228
  Receipt Date: 20230307
  Transmission Date: 20230418
  Serious: Yes (Other)
  Sender: FDA-Public Use
  Company Number: None

PATIENT
  Age: 40 Year
  Sex: Female

DRUGS (8)
  1. ABILIFY [Suspect]
     Active Substance: ARIPIPRAZOLE
     Indication: Brief psychotic disorder with marked stressors
     Dosage: 20 MG, QD
     Route: 048
     Dates: start: 201911, end: 201912
  2. ABILIFY [Suspect]
     Active Substance: ARIPIPRAZOLE
     Dosage: 20 MG, QD
     Route: 048
     Dates: start: 202002, end: 202005
  3. ABILIFY [Suspect]
     Active Substance: ARIPIPRAZOLE
     Dosage: 15 MG, QD
     Route: 048
     Dates: start: 202107, end: 202110
  4. ABILIFY [Suspect]
     Active Substance: ARIPIPRAZOLE
     Dosage: 10 MG, QD
     Route: 048
     Dates: start: 202110, end: 202111
  5. ABILIFY [Suspect]
     Active Substance: ARIPIPRAZOLE
     Dosage: 10 MG, QD
     Route: 048
     Dates: start: 202209, end: 202210
  6. ABILIFY MAINTENA [Suspect]
     Active Substance: ARIPIPRAZOLE
     Indication: Borderline personality disorder
     Dosage: 300 MG 1J/28
     Route: 030
     Dates: start: 202008, end: 202207
  7. ABILIFY MAINTENA [Suspect]
     Active Substance: ARIPIPRAZOLE
     Dosage: 400 MG 1J/28
     Route: 030
     Dates: start: 202005, end: 202007
  8. HALOPERIDOL [Concomitant]
     Active Substance: HALOPERIDOL
     Indication: Borderline personality disorder
     Dosage: 50 MG  1J/28
     Route: 030
     Dates: start: 201911, end: 201912

REACTIONS (5)
  - Behavioural addiction [Not Recovered/Not Resolved]
  - Gambling disorder [Recovering/Resolving]
  - Condition aggravated [Recovering/Resolving]
  - Product use in unapproved indication [Unknown]
  - Underdose [Unknown]

NARRATIVE: CASE EVENT DATE: 20210401
